FAERS Safety Report 18518603 (Version 1)
Quarter: 2020Q4

REPORT INFORMATION
  Report Type: Spontaneous
  Country: AU (occurrence: AU)
  Receive Date: 20201118
  Receipt Date: 20201118
  Transmission Date: 20210114
  Serious: Yes (Other)
  Sender: FDA-Public Use
  Company Number: AU-NOVOPROD-767979

PATIENT
  Age: 74 Year
  Sex: Female

DRUGS (3)
  1. NOVOMIX 30 [Suspect]
     Active Substance: INSULIN ASPART
     Dosage: 14 IU, BID
     Route: 065
  2. DIAMICRON [Concomitant]
     Active Substance: GLICLAZIDE
     Indication: PRODUCT USED FOR UNKNOWN INDICATION
     Dosage: UNK (BD)
     Route: 065
  3. NOVOMIX 30 [Suspect]
     Active Substance: INSULIN ASPART
     Indication: PRODUCT USED FOR UNKNOWN INDICATION
     Dosage: 10-12 IU BID
     Route: 065

REACTIONS (1)
  - Salmonella sepsis [Unknown]

NARRATIVE: CASE EVENT DATE: 201903
